FAERS Safety Report 8988293 (Version 4)
Quarter: 2013Q4

REPORT INFORMATION
  Report Type: Spontaneous
  Country: DK (occurrence: DK)
  Receive Date: 20121227
  Receipt Date: 20131213
  Transmission Date: 20140711
  Serious: Yes (Hospitalization)
  Sender: FDA-Public Use
  Company Number: DK-ROCHE-1168685

PATIENT
  Age: 70 Year
  Sex: Female

DRUGS (6)
  1. BONDRONAT [Suspect]
     Indication: METASTASES TO BONE
     Dosage: STRENGTH: 50 MG
     Route: 048
     Dates: start: 200505, end: 201112
  2. ZOMETA [Suspect]
     Indication: METASTASES TO BONE
     Dosage: STYRKE: 4 MG/100 ML
     Route: 042
     Dates: start: 201011, end: 20101223
  3. ARIMIDEX [Concomitant]
     Indication: BREAST CANCER FEMALE
     Route: 048
     Dates: start: 20090618, end: 20111201
  4. PREDNISOLON [Concomitant]
     Dosage: DATES AND INDICATION NOT PROVIDED.
     Route: 048
  5. XELODA [Concomitant]
     Route: 065
     Dates: start: 20100803, end: 201011
  6. OXALIPLATIN [Concomitant]
     Route: 065
     Dates: start: 20100803, end: 201011

REACTIONS (9)
  - Osteonecrosis of jaw [Not Recovered/Not Resolved]
  - Tooth infection [Unknown]
  - Tooth extraction [Unknown]
  - Infection [Unknown]
  - Fistula [Unknown]
  - Jaw operation [Unknown]
  - Oroantral fistula [Unknown]
  - Breath odour [Unknown]
  - Exposed bone in jaw [Unknown]
